FAERS Safety Report 10875051 (Version 1)
Quarter: 2015Q1

REPORT INFORMATION
  Report Type: Spontaneous
  Country: US (occurrence: US)
  Receive Date: 20150227
  Receipt Date: 20150227
  Transmission Date: 20150721
  Serious: No
  Sender: FDA-Public Use
  Company Number: US-GE HEALTHCARE MEDICAL DIAGNOSTICS-MYVW-PR-1412S-0106

PATIENT
  Age: 54 Year
  Sex: Male

DRUGS (8)
  1. MYOVIEW [Suspect]
     Active Substance: TECHNETIUM TC-99M TETROFOSMIN\TETROFOSMIN
     Indication: CHEST PAIN
     Route: 042
     Dates: start: 20141208, end: 20141208
  2. CRESTOR [Concomitant]
     Active Substance: ROSUVASTATIN CALCIUM
  3. ASPIRIN. [Concomitant]
     Active Substance: ASPIRIN
  4. COQ10 [Concomitant]
     Active Substance: UBIDECARENONE
  5. DMSO [Concomitant]
     Active Substance: DIMETHYL SULFOXIDE
  6. MYOVIEW [Suspect]
     Active Substance: TECHNETIUM TC-99M TETROFOSMIN\TETROFOSMIN
     Indication: CORONARY ARTERY DISEASE
     Route: 042
     Dates: start: 20141208, end: 20141208
  7. MYOVIEW [Suspect]
     Active Substance: TECHNETIUM TC-99M TETROFOSMIN\TETROFOSMIN
     Indication: DIAGNOSTIC PROCEDURE
  8. VITAMIN B12 [Concomitant]
     Active Substance: CYANOCOBALAMIN

REACTIONS (1)
  - Urine arsenic increased [Unknown]

NARRATIVE: CASE EVENT DATE: 20141208
